FAERS Safety Report 16653008 (Version 3)
Quarter: 2019Q3

REPORT INFORMATION
  Report Type: Spontaneous
  Country: US (occurrence: US)
  Receive Date: 20190731
  Receipt Date: 20190920
  Transmission Date: 20191004
  Serious: Yes (Hospitalization, Disabling, Other)
  Sender: FDA-Public Use
  Company Number: PHEH2019US031638

PATIENT
  Age: 36 Year
  Sex: Female
  Weight: 66.67 kg

DRUGS (1)
  1. GILENYA [Suspect]
     Active Substance: FINGOLIMOD HYDROCHLORIDE
     Indication: MULTIPLE SCLEROSIS
     Dosage: 0.5 MG, QD
     Route: 048
     Dates: start: 20161111, end: 20190124

REACTIONS (3)
  - Blindness transient [Recovering/Resolving]
  - Lymphocyte count decreased [Unknown]
  - Retinitis viral [Recovered/Resolved with Sequelae]

NARRATIVE: CASE EVENT DATE: 20190116
